FAERS Safety Report 18053380 (Version 2)
Quarter: 2020Q3

REPORT INFORMATION
  Report Type: Spontaneous
  Country: US (occurrence: US)
  Receive Date: 20200722
  Receipt Date: 20200807
  Transmission Date: 20201103
  Serious: Yes (Other)
  Sender: FDA-Public Use
  Company Number: US-009507513-2007USA008131

PATIENT
  Age: 22 Year
  Sex: Female
  Weight: 115.65 kg

DRUGS (1)
  1. NEXPLANON [Suspect]
     Active Substance: ETONOGESTREL
     Indication: CONTRACEPTION
     Dosage: 1 ROD EVERY THREE YEARS, FIRST IMPLANT
     Route: 059
     Dates: start: 20181026, end: 20200720

REACTIONS (3)
  - Device breakage [Recovered/Resolved]
  - Implant site pain [Unknown]
  - Implant site scar [Unknown]

NARRATIVE: CASE EVENT DATE: 202003
